FAERS Safety Report 20347725 (Version 1)
Quarter: 2022Q1

REPORT INFORMATION
  Report Type: Spontaneous
  Country: US (occurrence: US)
  Receive Date: 20220118
  Receipt Date: 20220118
  Transmission Date: 20220423
  Serious: No
  Sender: FDA-Public Use
  Company Number: US-ALKERMES INC.-ALK-2022-000191

PATIENT
  Age: 20 Year
  Sex: Male

DRUGS (3)
  1. ARISTADA [Suspect]
     Active Substance: ARIPIPRAZOLE LAUROXIL
     Indication: Schizoaffective disorder bipolar type
     Dosage: 1064 MILLIGRAM, Q2MO
     Route: 030
     Dates: start: 20220112
  2. ARISTADA [Suspect]
     Active Substance: ARIPIPRAZOLE LAUROXIL
     Dosage: 1064 MILLIGRAM, Q2MO
     Route: 030
     Dates: start: 20180101, end: 20180101
  3. COGENTIN [Concomitant]
     Active Substance: BENZTROPINE MESYLATE
     Indication: Product used for unknown indication
     Dosage: 380 UNK
     Route: 065

REACTIONS (4)
  - Off label use [Not Recovered/Not Resolved]
  - Drug screen positive [Not Recovered/Not Resolved]
  - Substance-induced psychotic disorder [Unknown]
  - Substance use [Unknown]

NARRATIVE: CASE EVENT DATE: 20180101
